FAERS Safety Report 8374388-3 (Version None)
Quarter: 2012Q2

REPORT INFORMATION
  Report Type: 
  Country: None (occurrence: None)
  Receive Date: 20120521
  Receipt Date: 20120514
  Transmission Date: 20120825
  Serious: Yes (Hospitalization)
  Sender: FDA-Public Use
  Company Number: JP-FRI-1000030589

PATIENT
  Age: 90 Year
  Sex: Female

DRUGS (11)
  1. MEMANTINE HCL [Suspect]
     Dosage: 20 MG
     Route: 048
     Dates: start: 20120502, end: 20120509
  2. EXFORGE [Concomitant]
  3. MEMANTINE HCL [Suspect]
     Indication: DEMENTIA ALZHEIMER'S TYPE
     Dosage: 5 MG
     Route: 048
     Dates: start: 20120412, end: 20120418
  4. ONEALFA [Concomitant]
  5. MAGMITT [Concomitant]
  6. PLAVIX [Concomitant]
  7. RABEPRAZOLE SODIUM [Concomitant]
  8. MEMANTINE HCL [Suspect]
     Dosage: 15 MG
     Route: 048
     Dates: start: 20120426, end: 20120501
  9. MEMANTINE HCL [Suspect]
     Dosage: 10 MG
     Route: 048
     Dates: start: 20120419, end: 20120425
  10. EPADEL [Concomitant]
  11. SELBEX [Concomitant]

REACTIONS (4)
  - EXTRASYSTOLES [None]
  - PETIT MAL EPILEPSY [None]
  - DECREASED APPETITE [None]
  - HEADACHE [None]
